FAERS Safety Report 13772947 (Version 3)
Quarter: 2017Q3

REPORT INFORMATION
  Report Type: Report from Study
  Country: JP (occurrence: JP)
  Receive Date: 20170720
  Receipt Date: 20170809
  Transmission Date: 20171127
  Serious: Yes (Death)
  Sender: FDA-Public Use
  Company Number: JP-B.I. PHARMACEUTICALS,INC./RIDGEFIELD-2017-NB-004080

PATIENT
  Age: 9 Decade
  Sex: Female
  Weight: 42 kg

DRUGS (2)
  1. PRIZBIND [Suspect]
     Active Substance: IDARUCIZUMAB
     Indication: PROCOAGULANT THERAPY
     Route: 042
     Dates: start: 20170415, end: 20170415
  2. PRIZBIND [Suspect]
     Active Substance: IDARUCIZUMAB
     Route: 042
     Dates: start: 20170415, end: 20170415

REACTIONS (1)
  - Cerebral haemorrhage [Fatal]

NARRATIVE: CASE EVENT DATE: 20170628
